FAERS Safety Report 6497637-5 (Version None)
Quarter: 2009Q4

REPORT INFORMATION
  Report Type: 
  Country: None (occurrence: None)
  Receive Date: 20091215
  Receipt Date: 20091202
  Transmission Date: 20100525
  Serious: Yes (Hospitalization)
  Sender: FDA-Public Use
  Company Number: US-CELGENEUS-163-21880-09120298

PATIENT
  Sex: Male

DRUGS (3)
  1. REVLIMID [Suspect]
     Indication: MULTIPLE MYELOMA
     Route: 048
     Dates: start: 20080601, end: 20080901
  2. REVLIMID [Suspect]
     Dosage: 10-5MG
     Route: 048
     Dates: start: 20090301
  3. REVLIMID [Suspect]
     Route: 048
     Dates: start: 20080301, end: 20080601

REACTIONS (1)
  - CARDIOTOXICITY [None]
